FAERS Safety Report 21766217 (Version 1)
Quarter: 2022Q4

REPORT INFORMATION
  Report Type: Spontaneous
  Country: NL (occurrence: NL)
  Receive Date: 20221222
  Receipt Date: 20221222
  Transmission Date: 20230113
  Serious: Yes (Other)
  Sender: FDA-Public Use
  Company Number: None

PATIENT
  Sex: Male
  Weight: 90 kg

DRUGS (1)
  1. AMLODIPINE [Suspect]
     Active Substance: AMLODIPINE BESYLATE
     Indication: Hypertension
     Dosage: 5 MILLIGRAM DAILY;  1 X PER DAY 1 , BRAND NAME NOT SPECIFIED , FORM STRENGTH : 5 MG , DURATION : 54
     Dates: start: 20221009, end: 20221202

REACTIONS (3)
  - Erectile dysfunction [Not Recovered/Not Resolved]
  - Tremor [Not Recovered/Not Resolved]
  - Pollakiuria [Not Recovered/Not Resolved]
